FAERS Safety Report 9027712 (Version 1)
Quarter: 2013Q1

REPORT INFORMATION
  Report Type: Spontaneous
  Country: BR (occurrence: BR)
  Receive Date: 20130124
  Receipt Date: 20130124
  Transmission Date: 20140127
  Serious: Yes (Other)
  Sender: FDA-Public Use
  Company Number: BR-AMGEN-BRASP2012042083

PATIENT
  Age: 59 Year
  Sex: Female
  Weight: 78 kg

DRUGS (5)
  1. ENBREL [Suspect]
     Indication: RHEUMATOID ARTHRITIS
     Dosage: 50 MG, ONCE WEEKLY
     Route: 058
     Dates: start: 201207
  2. ATENOLOL [Concomitant]
     Indication: HYPERTENSION
     Dosage: UNK
  3. ATENOLOL [Concomitant]
     Indication: BLOOD PRESSURE INCREASED
  4. LEVOID [Concomitant]
     Dosage: UNK
  5. LOSARTAN [Concomitant]
     Dosage: UNK

REACTIONS (9)
  - Blood pressure increased [Unknown]
  - Pain [Unknown]
  - Thyroid disorder [Unknown]
  - Macular hole [Unknown]
  - Injection site pain [Unknown]
  - Wrong technique in drug usage process [Unknown]
  - Tachycardia [Unknown]
  - Toothache [Unknown]
  - Prosthesis user [Unknown]
